FAERS Safety Report 21418317 (Version 1)
Quarter: 2022Q4

REPORT INFORMATION
  Report Type: Spontaneous
  Country: PR (occurrence: None)
  Receive Date: 20221005
  Receipt Date: 20221005
  Transmission Date: 20230112
  Serious: No
  Sender: FDA-Public Use
  Company Number: None

PATIENT
  Age: 49 Year
  Sex: Female
  Weight: 80.1 kg

DRUGS (2)
  1. MOUNJARO [Suspect]
     Active Substance: TIRZEPATIDE
     Indication: Diabetes mellitus
     Dosage: OTHER FREQUENCY : WEEKLY;?
     Route: 058
     Dates: start: 20220928, end: 20220928
  2. METFORMIN [Concomitant]
     Active Substance: METFORMIN HYDROCHLORIDE
     Dates: start: 20220413

REACTIONS (4)
  - Nausea [None]
  - Vomiting [None]
  - Decreased appetite [None]
  - Eating disorder [None]

NARRATIVE: CASE EVENT DATE: 20220928
